FAERS Safety Report 16848071 (Version 2)
Quarter: 2019Q4

REPORT INFORMATION
  Report Type: Spontaneous
  Country: US (occurrence: US)
  Receive Date: 20190925
  Receipt Date: 20191022
  Transmission Date: 20200122
  Serious: No
  Sender: FDA-Public Use
  Company Number: US-GLAXOSMITHKLINE-US2019168159

PATIENT
  Sex: Male
  Weight: 57.14 kg

DRUGS (1)
  1. VENTOLIN HFA [Suspect]
     Active Substance: ALBUTEROL SULFATE
     Indication: DYSPNOEA
     Dosage: 2 PUFF(S), PRN, 2 PUFFS EVERY 4 HOURS AS NEEDED
     Route: 055

REACTIONS (1)
  - Wrong technique in product usage process [Unknown]
